FAERS Safety Report 9637780 (Version 4)
Quarter: 2014Q2

REPORT INFORMATION
  Report Type: Spontaneous
  Country: US (occurrence: US)
  Receive Date: 20131022
  Receipt Date: 20140417
  Transmission Date: 20141212
  Serious: Yes (Other)
  Sender: FDA-Public Use
  Company Number: US-FRI-1000050106

PATIENT
  Age: 59 Year
  Sex: Female
  Weight: 59.42 kg

DRUGS (5)
  1. VIIBRYD [Suspect]
     Indication: DEPRESSION
     Dosage: 10 MG
     Route: 048
     Dates: start: 20120712, end: 20120718
  2. VIIBRYD [Suspect]
     Dosage: 20 MG
     Route: 048
     Dates: start: 20120719, end: 20120725
  3. VIIBRYD [Suspect]
     Indication: DEPRESSION
     Dosage: 40 MG
     Route: 048
     Dates: start: 20120726, end: 20131014
  4. METOPROLOL [Concomitant]
     Indication: HYPERTENSION
     Dosage: 50 MG
  5. KLONOPIN [Concomitant]
     Dosage: 3 MG
     Dates: start: 20120712

REACTIONS (15)
  - Haematochezia [Recovered/Resolved]
  - Blood pressure increased [Recovered/Resolved]
  - Abdominal discomfort [Unknown]
  - Abdominal pain upper [Unknown]
  - Diarrhoea [Unknown]
  - Headache [Unknown]
  - Anger [Unknown]
  - Drug ineffective [Unknown]
  - Abdominal distension [Unknown]
  - Restlessness [Unknown]
  - Insomnia [Unknown]
  - Anxiety [Unknown]
  - Polyp [Unknown]
  - Haemorrhoids [Unknown]
  - Abdominal pain lower [Unknown]
